FAERS Safety Report 6422288-8 (Version None)
Quarter: 2009Q4

REPORT INFORMATION
  Report Type: 
  Country: None (occurrence: None)
  Receive Date: 20091030
  Receipt Date: 20091020
  Transmission Date: 20100525
  Serious: Yes (Other)
  Sender: FDA-Public Use
  Company Number: JP-PFIZER INC-2009290532

PATIENT
  Age: 65 Year

DRUGS (9)
  1. LIPITOR [Suspect]
     Indication: HYPERLIPIDAEMIA
     Dosage: 5 MG, UNK
     Route: 048
  2. MICARDIS [Concomitant]
     Dosage: UNK
  3. GARENOXACIN [Concomitant]
     Indication: PHARYNGEAL DISORDER
     Dosage: UNK
     Dates: start: 20090928
  4. GARENOXACIN [Concomitant]
     Indication: UPPER RESPIRATORY TRACT INFLAMMATION
  5. MUCODYNE [Concomitant]
     Indication: PHARYNGEAL DISORDER
     Dosage: UNK
     Route: 048
     Dates: start: 20090928
  6. MUCODYNE [Concomitant]
     Indication: UPPER RESPIRATORY TRACT INFLAMMATION
  7. TALION [Concomitant]
     Indication: PHARYNGEAL DISORDER
     Dosage: UNK
     Route: 048
     Dates: start: 20090928
  8. TALION [Concomitant]
     Indication: UPPER RESPIRATORY TRACT INFLAMMATION
  9. FAMOTIDINE [Concomitant]
     Dosage: UNK

REACTIONS (1)
  - ELECTROCARDIOGRAM QT PROLONGED [None]
